FAERS Safety Report 8599556-7 (Version None)
Quarter: 2012Q3

REPORT INFORMATION
  Report Type: 
  Country: None (occurrence: None)
  Receive Date: 20120802
  Receipt Date: 20120717
  Transmission Date: 20120928
  Serious: Yes (Hospitalization)
  Sender: FDA-Public Use
  Company Number: AE-ANP-2012-007

PATIENT
  Age: 22 Year
  Sex: Male

DRUGS (1)
  1. AMPICILLIN AND SULBACTAM [Suspect]
     Indication: SINUSITIS

REACTIONS (3)
  - ENTEROCOLITIS HAEMORRHAGIC [None]
  - CLOSTRIDIUM TEST POSITIVE [None]
  - KLEBSIELLA TEST POSITIVE [None]
